FAERS Safety Report 19475882 (Version 1)
Quarter: 2021Q2

REPORT INFORMATION
  Report Type: Report from Study
  Country: US (occurrence: US)
  Receive Date: 20210630
  Receipt Date: 20210630
  Transmission Date: 20210717
  Serious: Yes (Death, Other)
  Sender: FDA-Public Use
  Company Number: US-PFIZER INC-2021763425

PATIENT

DRUGS (2)
  1. CYTARABINE. [Suspect]
     Active Substance: CYTARABINE
     Dosage: 1.0 G/M2 IV WAS GIVEN OVER 2 HOURS ON DAYS 1 TO 5
     Route: 042
  2. TOPOTECAN [Suspect]
     Active Substance: TOPOTECAN HYDROCHLORIDE
     Dosage: 1.25 MG/M2 (CONTINUOUS INTRAVENOUS (IV) INFUSION ON DAYS 1 TO 5)
     Route: 042

REACTIONS (1)
  - Haemorrhage [Fatal]
